FAERS Safety Report 6385727-7 (Version None)
Quarter: 2009Q4

REPORT INFORMATION
  Report Type: 
  Country: None (occurrence: None)
  Receive Date: 20091002
  Receipt Date: 20081003
  Transmission Date: 20100525
  Serious: No
  Sender: FDA-Public Use
  Company Number: US-ASTRAZENECA-2008UW21574

PATIENT
  Age: 67 Year
  Sex: Female

DRUGS (4)
  1. ARIMIDEX [Suspect]
     Dates: start: 20040101
  2. MULTI-VITAMIN [Concomitant]
  3. MINERAL TAB [Concomitant]
  4. GLUCOSAMINE W/CHONDROITIN [Concomitant]

REACTIONS (3)
  - MOBILITY DECREASED [None]
  - NEOPLASM MALIGNANT [None]
  - PAIN IN EXTREMITY [None]
